FAERS Safety Report 14326491 (Version 1)
Quarter: 2017Q4

REPORT INFORMATION
  Report Type: Other
  Country: NL (occurrence: NL)
  Receive Date: 20171227
  Receipt Date: 20171227
  Transmission Date: 20180321
  Serious: Yes (Death, Life-Threatening, Hospitalization, Other)
  Sender: FDA-Public Use
  Company Number: NL-APOTEX-2017AP022843

PATIENT
  Age: 64 Year
  Sex: Male

DRUGS (3)
  1. ENALAPRILMALEAAT/HYDROCHLOORTHIAZIDE, TABLETTEN [Suspect]
     Active Substance: ENALAPRIL MALEATE\HYDROCHLOROTHIAZIDE
     Indication: PRODUCT USED FOR UNKNOWN INDICATION
     Dosage: UNK UNK, QD
     Route: 048
  2. TOBRAMYCIN. [Concomitant]
     Active Substance: TOBRAMYCIN
     Indication: PRODUCT USED FOR UNKNOWN INDICATION
     Dosage: UNK
     Route: 065
  3. AMOXICILLIN (+) CLAVULANATE POTASSIUM [Concomitant]
     Active Substance: AMOXICILLIN\CLAVULANATE POTASSIUM
     Indication: ENTEROCOCCAL INFECTION
     Dosage: UNK
     Route: 065

REACTIONS (6)
  - Osmotic demyelination syndrome [Fatal]
  - Hypokalaemia [Fatal]
  - Hepatic enzyme increased [Fatal]
  - Hypovolaemia [Fatal]
  - Acute kidney injury [Fatal]
  - Hyponatraemia [Fatal]
